FAERS Safety Report 7265120-5 (Version None)
Quarter: 2011Q1

REPORT INFORMATION
  Report Type: 
  Country: None (occurrence: None)
  Receive Date: 20110131
  Receipt Date: 20110126
  Transmission Date: 20110831
  Serious: Yes (Death, Other)
  Sender: FDA-Public Use
  Company Number: IE-MEDIMMUNE-MEDI-0012174

PATIENT
  Sex: Female
  Weight: 8.16 kg

DRUGS (7)
  1. RANITIDINE HYDROCHLORIDE [Concomitant]
  2. DUPHALAX [Concomitant]
  3. MORPHINE [Concomitant]
  4. ANTACIDS [Concomitant]
  5. SYNAGIS [Suspect]
     Indication: SPINAL MUSCULAR ATROPHY
     Route: 030
     Dates: start: 20101115, end: 20101214
  6. AUGMENTIN '125' [Concomitant]
  7. LACTULOSE [Concomitant]

REACTIONS (2)
  - GENERAL PHYSICAL HEALTH DETERIORATION [None]
  - TERMINAL STATE [None]
